FAERS Safety Report 10668198 (Version 3)
Quarter: 2015Q1

REPORT INFORMATION
  Report Type: Spontaneous
  Country: US (occurrence: US)
  Receive Date: 20141222
  Receipt Date: 20150212
  Transmission Date: 20150720
  Serious: No
  Sender: FDA-Public Use
  Company Number: US-GLAXOSMITHKLINE-A1067135A

PATIENT
  Sex: Male

DRUGS (2)
  1. AVODART [Suspect]
     Active Substance: DUTASTERIDE
     Indication: METABOLIC DISORDER
     Dosage: UNKNOWN DOSING
     Route: 065
  2. AVODART [Suspect]
     Active Substance: DUTASTERIDE
     Indication: HYPERTENSION

REACTIONS (2)
  - Off label use [Unknown]
  - Ill-defined disorder [Unknown]
